FAERS Safety Report 7686240-7 (Version None)
Quarter: 2011Q3

REPORT INFORMATION
  Report Type: 
  Country: None (occurrence: None)
  Receive Date: 20110816
  Receipt Date: 20110808
  Transmission Date: 20111222
  Serious: Yes (Other)
  Sender: FDA-Public Use
  Company Number: US-GLAXOSMITHKLINE-A0927859A

PATIENT
  Age: 64 Year
  Sex: Female

DRUGS (7)
  1. MULTI-VITAMIN [Concomitant]
  2. VITAMIN D [Concomitant]
  3. FISH OIL [Concomitant]
  4. FERROUS SULFATE TAB [Concomitant]
  5. CALCIUM CARBONATE [Concomitant]
  6. ALLI [Suspect]
     Indication: WEIGHT LOSS DIET
     Route: 048
     Dates: end: 20110411
  7. FOSAMAX [Concomitant]

REACTIONS (7)
  - BLOOD URINE PRESENT [None]
  - GALLBLADDER DISORDER [None]
  - ABDOMINAL PAIN UPPER [None]
  - ULTRASOUND LIVER [None]
  - ABDOMEN SCAN [None]
  - NEPHROLITHIASIS [None]
  - CHEST PAIN [None]
